FAERS Safety Report 4719461-3 (Version None)
Quarter: 2005Q3

REPORT INFORMATION
  Report Type: 
  Country: None (occurrence: None)
  Receive Date: 20050719
  Receipt Date: 20050708
  Transmission Date: 20060218
  Serious: Yes (Death)
  Sender: FDA-Public Use
  Company Number: 05H-028-0300985-00

PATIENT
  Sex: Male

DRUGS (1)
  1. ATROPINE SULFATE [Suspect]
     Indication: CARDIAC ARREST
     Dosage: TWICE, INJECTION
     Dates: start: 20050623, end: 20050623

REACTIONS (1)
  - MEDICAL DEVICE COMPLICATION [None]
